FAERS Safety Report 9600608 (Version 4)
Quarter: 2015Q1

REPORT INFORMATION
  Report Type: Spontaneous
  Country: US (occurrence: US)
  Receive Date: 20131004
  Receipt Date: 20150121
  Transmission Date: 20150721
  Serious: Yes (Other)
  Sender: FDA-Public Use
  Company Number: US-AMGEN-USASP2013037103

PATIENT
  Age: 58 Year
  Sex: Female

DRUGS (1)
  1. ENBREL [Suspect]
     Active Substance: ETANERCEPT
     Indication: RHEUMATOID ARTHRITIS
     Dosage: 50 MG, QWK
     Route: 065
     Dates: start: 20130222, end: 201406

REACTIONS (10)
  - Injection site warmth [Not Recovered/Not Resolved]
  - Injection site pain [Recovered/Resolved]
  - Arthritis [Not Recovered/Not Resolved]
  - Injection site reaction [Recovered/Resolved]
  - Injection site erythema [Not Recovered/Not Resolved]
  - Injection site bruising [Not Recovered/Not Resolved]
  - Injection site rash [Not Recovered/Not Resolved]
  - Cataract [Recovered/Resolved]
  - Injection site swelling [Recovered/Resolved]
  - Injection site pruritus [Not Recovered/Not Resolved]

NARRATIVE: CASE EVENT DATE: 20130222
